FAERS Safety Report 8099572-8 (Version None)
Quarter: 2012Q1

REPORT INFORMATION
  Report Type: 
  Country: None (occurrence: None)
  Receive Date: 20120129
  Receipt Date: 20110906
  Transmission Date: 20120608
  Serious: No
  Sender: FDA-Public Use
  Company Number: US-ABBOTT-11P-163-0852000-00

PATIENT
  Age: 35 Year
  Sex: Female

DRUGS (3)
  1. MERCAPTOPURINE [Concomitant]
     Indication: PRODUCT USED FOR UNKNOWN INDICATION
     Dates: start: 20100101
  2. SYNTHROID [Concomitant]
     Indication: PRODUCT USED FOR UNKNOWN INDICATION
     Dates: start: 20040101
  3. HUMIRA [Suspect]
     Indication: CROHN'S DISEASE
     Dates: start: 20100101

REACTIONS (6)
  - DEPRESSION [None]
  - CHEST PAIN [None]
  - PAIN IN EXTREMITY [None]
  - PRODUCTIVE COUGH [None]
  - ARTHRALGIA [None]
  - COUGH [None]
